FAERS Safety Report 21890045 (Version 2)
Quarter: 2023Q1

REPORT INFORMATION
  Report Type: Spontaneous
  Country: JP (occurrence: JP)
  Receive Date: 20230120
  Receipt Date: 20230302
  Transmission Date: 20230417
  Serious: Yes (Disabling, Other)
  Sender: FDA-Public Use
  Company Number: JP-BAYER-2023A007738

PATIENT
  Age: 8 Decade
  Sex: Male

DRUGS (3)
  1. EYLEA [Suspect]
     Active Substance: AFLIBERCEPT
     Indication: Age-related macular degeneration
     Dosage: NEARLY 4 YRS AT 12-16 WKS INTERVALS IN PAST, RT EYE, SOLUTION FOR INJECTION (STRENGTH: 40 MG/ML)
     Route: 031
     Dates: start: 201904
  2. EYLEA [Suspect]
     Active Substance: AFLIBERCEPT
     Dosage: ONCE, RT EYE, 17TH INJECTION, SOLUTION FOR INJECTION (STRENGTH: 40 MG/ML)
     Route: 031
     Dates: start: 20221006, end: 20221006
  3. LUCENTIS [Suspect]
     Active Substance: RANIBIZUMAB
     Indication: Product used for unknown indication
     Dosage: 3 TIMES
     Dates: start: 2019, end: 2020

REACTIONS (3)
  - Quadriplegia [Unknown]
  - Brain stem infarction [Recovered/Resolved with Sequelae]
  - Bedridden [Unknown]

NARRATIVE: CASE EVENT DATE: 20221001
